FAERS Safety Report 14414308 (Version 1)
Quarter: 2018Q1

REPORT INFORMATION
  Report Type: Spontaneous
  Country: FR (occurrence: FR)
  Receive Date: 20180120
  Receipt Date: 20180120
  Transmission Date: 20180509
  Serious: Yes (Hospitalization)
  Sender: FDA-Public Use
  Company Number: FR-SUN PHARMACEUTICAL INDUSTRIES LTD-2018RR-160456

PATIENT
  Age: 47 Year
  Sex: Female

DRUGS (5)
  1. PARACETAMOL [Suspect]
     Active Substance: ACETAMINOPHEN
     Indication: NASOPHARYNGITIS
     Dosage: 1 G DAILY SI BESOIN
     Route: 048
     Dates: start: 20171212, end: 20171220
  2. PREDNISOLONE. [Suspect]
     Active Substance: PREDNISOLONE
     Indication: NASOPHARYNGITIS
     Dosage: 60 MG, DAILY
     Route: 048
     Dates: start: 20171212, end: 20171220
  3. AMOXICILLINE [Suspect]
     Active Substance: AMOXICILLIN
     Indication: NASOPHARYNGITIS
     Dosage: 3 G, DAILY
     Route: 048
     Dates: start: 20171212, end: 20171220
  4. TOBRAMYCIN. [Suspect]
     Active Substance: TOBRAMYCIN
     Indication: CONJUNCTIVITIS
     Dosage: 3 GTT, DAILY
     Route: 047
     Dates: start: 20171212, end: 20171220
  5. PIVALONE (NEOMYCIN\POLYMYXIN B\TIXOCORTOL) [Suspect]
     Active Substance: NEOMYCIN\POLYMYXIN B\TIXOCORTOL
     Indication: NASOPHARYNGITIS
     Dosage: NON RENSEIGN?E ()
     Route: 045
     Dates: start: 20171212, end: 20171220

REACTIONS (1)
  - Acute generalised exanthematous pustulosis [Not Recovered/Not Resolved]

NARRATIVE: CASE EVENT DATE: 20171216
